FAERS Safety Report 18401143 (Version 1)
Quarter: 2020Q4

REPORT INFORMATION
  Report Type: Other
  Country: BE (occurrence: BE)
  Receive Date: 20201019
  Receipt Date: 20201019
  Transmission Date: 20210114
  Serious: Yes (Death, Life-Threatening, Hospitalization)
  Sender: FDA-Public Use
  Company Number: BE-NOSTRUM LABORATORIES, INC.-2092916

PATIENT
  Age: 38 Year
  Sex: Female

DRUGS (1)
  1. VENLAFAXINE HYDROCHLORIDE. [Suspect]
     Active Substance: VENLAFAXINE HYDROCHLORIDE
     Indication: INTENTIONAL OVERDOSE
     Route: 048

REACTIONS (12)
  - Rhabdomyolysis [Fatal]
  - Intentional overdose [Fatal]
  - Pneumococcal sepsis [Fatal]
  - Pneumonia pneumococcal [Fatal]
  - Cardiac failure acute [Fatal]
  - Shock [Fatal]
  - Acute hepatic failure [Fatal]
  - Acute kidney injury [Fatal]
  - Coagulopathy [Fatal]
  - Hypotension [Fatal]
  - Serotonin syndrome [Fatal]
  - Respiratory failure [Fatal]
